FAERS Safety Report 17376814 (Version 3)
Quarter: 2020Q1

REPORT INFORMATION
  Report Type: Spontaneous
  Country: JP (occurrence: JP)
  Receive Date: 20200206
  Receipt Date: 20200327
  Transmission Date: 20200409
  Serious: Yes (Hospitalization)
  Sender: FDA-Public Use
  Company Number: JP-FERRINGPH-2019FE08373

PATIENT
  Age: 92 Year
  Sex: Male

DRUGS (7)
  1. XTANDI [Suspect]
     Active Substance: ENZALUTAMIDE
     Indication: HORMONE-REFRACTORY PROSTATE CANCER
     Dosage: 80 MG, 1 TIME DAILY AT BEDTIME
     Route: 048
     Dates: start: 20191011
  2. GONAX [Suspect]
     Active Substance: DEGARELIX
     Indication: HORMONE-REFRACTORY PROSTATE CANCER
     Dosage: 120 MG, MONTHLY
     Route: 058
     Dates: start: 20190909, end: 20191017
  3. LEUPLIN [Concomitant]
     Active Substance: LEUPROLIDE ACETATE
     Indication: HORMONE-REFRACTORY PROSTATE CANCER
     Route: 065
  4. BAYASPIRIN [Concomitant]
     Active Substance: ASPIRIN
     Dosage: UNK
  5. VESICARE [Concomitant]
     Active Substance: SOLIFENACIN SUCCINATE
     Dosage: UNK
  6. XTANDI [Suspect]
     Active Substance: ENZALUTAMIDE
     Dosage: 80 MG, 1 TIME DAILY
     Route: 048
     Dates: start: 20190619, end: 20190722
  7. FAMOTIDINE. [Concomitant]
     Active Substance: FAMOTIDINE
     Dosage: UNK

REACTIONS (6)
  - Injection site pain [Recovered/Resolved]
  - Prescribed underdose [Recovered/Resolved]
  - Product use in unapproved indication [Recovered/Resolved]
  - Pubis fracture [Recovering/Resolving]
  - Off label use [Recovered/Resolved]
  - Malaise [Recovered/Resolved]

NARRATIVE: CASE EVENT DATE: 20190612
